FAERS Safety Report 5224549-7 (Version None)
Quarter: 2007Q1

REPORT INFORMATION
  Report Type: 
  Country: None (occurrence: None)
  Receive Date: 20070126
  Receipt Date: 20070112
  Transmission Date: 20070707
  Serious: Yes (Other)
  Sender: FDA-Public Use
  Company Number: POMP-10933

PATIENT
  Age: 16 Month
  Sex: Female
  Weight: 11.8 kg

DRUGS (6)
  1. MYOZYME [Suspect]
     Indication: GLYCOGEN STORAGE DISEASE TYPE II
     Dosage: 250 MG Q2WKS IV
     Route: 042
     Dates: start: 20061007
  2. PULMICORT [Concomitant]
  3. CAPTOPRIL [Concomitant]
  4. CARVEDILOL [Concomitant]
  5. DIGOXIN [Concomitant]
  6. LASIX [Concomitant]

REACTIONS (2)
  - CARDIAC DISORDER [None]
  - URTICARIA [None]
